FAERS Safety Report 5386438-7 (Version None)
Quarter: 2007Q3

REPORT INFORMATION
  Report Type: 
  Country: None (occurrence: None)
  Receive Date: 20070710
  Receipt Date: 20070619
  Transmission Date: 20080115
  Serious: Yes (Hospitalization)
  Sender: FDA-Public Use
  Company Number: ENT 2007-0054

PATIENT
  Age: 70 Year
  Sex: Male

DRUGS (12)
  1. COMTAN [Suspect]
     Indication: PARKINSON'S DISEASE
     Dosage: 400 MG
     Route: 048
     Dates: start: 20070419, end: 20070422
  2. HYPEN [Suspect]
     Indication: BACK PAIN
     Dosage: 400 MG
     Route: 048
     Dates: start: 20070314, end: 20070422
  3. MARZULENE S [Concomitant]
  4. NEO DOPASTON [Concomitant]
  5. CABASER [Concomitant]
  6. METHYCOBAL [Concomitant]
  7. SYMMETREL [Concomitant]
  8. HARNAL [Concomitant]
  9. LENDORMIN [Concomitant]
  10. MUCODYNE [Concomitant]
  11. EXCEGRAN [Concomitant]
  12. SELBEX [Concomitant]

REACTIONS (10)
  - DISSEMINATED INTRAVASCULAR COAGULATION [None]
  - FUNGAL INFECTION [None]
  - GASTRITIS EROSIVE [None]
  - GASTRITIS HAEMORRHAGIC [None]
  - NEUROLEPTIC MALIGNANT SYNDROME [None]
  - OESOPHAGITIS HAEMORRHAGIC [None]
  - PNEUMONIA ASPIRATION [None]
  - REFLUX OESOPHAGITIS [None]
  - SEPSIS [None]
  - WHITE BLOOD CELL COUNT DECREASED [None]
